FAERS Safety Report 20170955 (Version 2)
Quarter: 2021Q4

REPORT INFORMATION
  Report Type: Spontaneous
  Country: GB (occurrence: None)
  Receive Date: 20211210
  Receipt Date: 20211210
  Transmission Date: 20220303
  Serious: Yes (Life-Threatening, Hospitalization, Disabling, Other)
  Sender: FDA-Public Use
  Company Number: 2021A866822

PATIENT
  Age: 31 Year
  Sex: Female

DRUGS (44)
  1. SEROQUEL [Suspect]
     Active Substance: QUETIAPINE FUMARATE
     Indication: Psychotic disorder
     Dosage: 300.0MG UNKNOWN
     Route: 048
     Dates: start: 20110224, end: 20110506
  2. OMEPRAZOLE [Suspect]
     Active Substance: OMEPRAZOLE
     Indication: Dyspepsia
     Route: 048
     Dates: start: 20110525
  3. AMITRIPTYLINE [Suspect]
     Active Substance: AMITRIPTYLINE
     Indication: Neuralgia
     Dates: start: 20110810
  4. CLONAZEPAM [Suspect]
     Active Substance: CLONAZEPAM
     Indication: Sedation
     Route: 048
     Dates: start: 20110224, end: 20110410
  5. CODEINE PHOSPHATE [Suspect]
     Active Substance: CODEINE PHOSPHATE
     Indication: Analgesic therapy
     Route: 048
     Dates: start: 20110615, end: 20110723
  6. CODEINE PHOSPHATE [Suspect]
     Active Substance: CODEINE PHOSPHATE
     Indication: Serotonin syndrome
     Route: 048
     Dates: start: 20110615, end: 20110723
  7. CODEINE PHOSPHATE [Suspect]
     Active Substance: CODEINE PHOSPHATE
     Indication: Analgesic therapy
  8. CODEINE PHOSPHATE [Suspect]
     Active Substance: CODEINE PHOSPHATE
     Indication: Serotonin syndrome
  9. DIAZEPAM [Suspect]
     Active Substance: DIAZEPAM
     Indication: Muscle spasms
     Dosage: 8.0MG UNKNOWN
     Route: 065
  10. DIAZEPAM [Suspect]
     Active Substance: DIAZEPAM
     Indication: Serotonin syndrome
     Dosage: 8.0MG UNKNOWN
     Route: 065
  11. DIAZEPAM [Suspect]
     Active Substance: DIAZEPAM
     Indication: Muscle spasms
     Dosage: 20.0MG UNKNOWN
     Route: 065
     Dates: start: 20110725, end: 20110725
  12. DIAZEPAM [Suspect]
     Active Substance: DIAZEPAM
     Indication: Serotonin syndrome
     Dosage: 20.0MG UNKNOWN
     Route: 065
     Dates: start: 20110725, end: 20110725
  13. DOMPERIDONE [Suspect]
     Active Substance: DOMPERIDONE
     Indication: Product used for unknown indication
     Route: 065
  14. LORAZEPAM [Suspect]
     Active Substance: LORAZEPAM
     Indication: Sedation
     Route: 048
     Dates: start: 20110224, end: 20110410
  15. LORAZEPAM [Suspect]
     Active Substance: LORAZEPAM
     Indication: Sedation
     Route: 048
     Dates: start: 20110523, end: 20110627
  16. MIRTAZAPINE [Suspect]
     Active Substance: MIRTAZAPINE
     Indication: Depression
     Route: 048
     Dates: start: 20101007, end: 20101012
  17. MIRTAZAPINE [Suspect]
     Active Substance: MIRTAZAPINE
     Indication: Depression
     Dosage: 30.0MG EVERY CYCLE
     Route: 048
     Dates: start: 20100923, end: 20101108
  18. PAROXETINE [Suspect]
     Active Substance: PAROXETINE
     Indication: Post-traumatic stress disorder
     Route: 048
     Dates: start: 201012
  19. PAROXETINE [Suspect]
     Active Substance: PAROXETINE
     Indication: Depression
     Route: 048
     Dates: start: 201012
  20. PAROXETINE [Suspect]
     Active Substance: PAROXETINE
     Indication: Post-traumatic stress disorder
     Route: 048
     Dates: start: 1997, end: 201105
  21. PAROXETINE [Suspect]
     Active Substance: PAROXETINE
     Indication: Depression
     Route: 048
     Dates: start: 1997, end: 201105
  22. PAROXETINE [Suspect]
     Active Substance: PAROXETINE
     Indication: Post-traumatic stress disorder
     Route: 048
     Dates: start: 19990801, end: 20110706
  23. PAROXETINE [Suspect]
     Active Substance: PAROXETINE
     Indication: Depression
     Route: 048
     Dates: start: 19990801, end: 20110706
  24. PAROXETINE [Suspect]
     Active Substance: PAROXETINE
     Indication: Post-traumatic stress disorder
     Route: 048
     Dates: start: 19990801, end: 201105
  25. PAROXETINE [Suspect]
     Active Substance: PAROXETINE
     Indication: Depression
     Route: 048
     Dates: start: 19990801, end: 201105
  26. PAROXETINE [Suspect]
     Active Substance: PAROXETINE
     Indication: Post-traumatic stress disorder
     Route: 048
     Dates: start: 201105, end: 20110706
  27. PAROXETINE [Suspect]
     Active Substance: PAROXETINE
     Indication: Depression
     Route: 048
     Dates: start: 201105, end: 20110706
  28. PAROXETINE [Suspect]
     Active Substance: PAROXETINE
     Indication: Post-traumatic stress disorder
     Route: 048
     Dates: start: 1999
  29. PAROXETINE [Suspect]
     Active Substance: PAROXETINE
     Indication: Depression
     Route: 048
     Dates: start: 1999
  30. PAROXETINE [Suspect]
     Active Substance: PAROXETINE
     Indication: Post-traumatic stress disorder
     Route: 048
     Dates: start: 1999, end: 201105
  31. PAROXETINE [Suspect]
     Active Substance: PAROXETINE
     Indication: Depression
     Route: 048
     Dates: start: 1999, end: 201105
  32. PHOSPHORUS [Suspect]
     Active Substance: PHOSPHORUS
     Indication: Product used for unknown indication
     Route: 065
  33. PROCYCLIDINE [Suspect]
     Active Substance: PROCYCLIDINE
     Indication: Oculogyric crisis
     Route: 048
     Dates: start: 20110324, end: 20110506
  34. PROCYCLIDINE [Suspect]
     Active Substance: PROCYCLIDINE
     Indication: Extrapyramidal disorder
     Route: 048
     Dates: start: 20110324, end: 20110506
  35. PROCYCLIDINE [Suspect]
     Active Substance: PROCYCLIDINE
     Indication: Oculogyric crisis
     Route: 065
     Dates: start: 1995, end: 1996
  36. PROCYCLIDINE [Suspect]
     Active Substance: PROCYCLIDINE
     Indication: Extrapyramidal disorder
     Route: 065
     Dates: start: 1995, end: 1996
  37. PROCYCLIDINE [Suspect]
     Active Substance: PROCYCLIDINE
     Indication: Oculogyric crisis
     Route: 065
     Dates: start: 20110415
  38. PROCYCLIDINE [Suspect]
     Active Substance: PROCYCLIDINE
     Indication: Extrapyramidal disorder
     Route: 065
     Dates: start: 20110415
  39. PROCYCLIDINE [Suspect]
     Active Substance: PROCYCLIDINE
     Indication: Oculogyric crisis
     Route: 048
     Dates: start: 20110503, end: 20110510
  40. PROCYCLIDINE [Suspect]
     Active Substance: PROCYCLIDINE
     Indication: Extrapyramidal disorder
     Route: 048
     Dates: start: 20110503, end: 20110510
  41. PROCYCLIDINE [Suspect]
     Active Substance: PROCYCLIDINE
     Indication: Oculogyric crisis
     Route: 048
     Dates: start: 20110503, end: 20110510
  42. PROCYCLIDINE [Suspect]
     Active Substance: PROCYCLIDINE
     Indication: Extrapyramidal disorder
     Route: 048
     Dates: start: 20110503, end: 20110510
  43. PAROXETINE HYDROCHLORIDE [Suspect]
     Active Substance: PAROXETINE HYDROCHLORIDE
     Indication: Depression
     Route: 048
     Dates: start: 201105, end: 20110706
  44. PAROXETINE HYDROCHLORIDE [Suspect]
     Active Substance: PAROXETINE HYDROCHLORIDE
     Indication: Depression
     Route: 048
     Dates: start: 19990801, end: 201105

REACTIONS (85)
  - Drooling [Unknown]
  - Cogwheel rigidity [Unknown]
  - Neuroleptic malignant syndrome [Unknown]
  - Vision blurred [Unknown]
  - Swelling face [Unknown]
  - Seizure [Not Recovered/Not Resolved]
  - Heart rate increased [Unknown]
  - Dizziness [Unknown]
  - Dyskinesia [Unknown]
  - Exposure during pregnancy [Unknown]
  - Drug interaction [Unknown]
  - Hallucinations, mixed [Unknown]
  - Incontinence [Not Recovered/Not Resolved]
  - Parosmia [Unknown]
  - Pruritus [Unknown]
  - Paraesthesia [Unknown]
  - Schizophrenia [Unknown]
  - Skin discolouration [Not Recovered/Not Resolved]
  - Mydriasis [Unknown]
  - Psychotic disorder [Recovered/Resolved]
  - Arthralgia [Unknown]
  - Eye pain [Unknown]
  - Hypoaesthesia [Not Recovered/Not Resolved]
  - Limb injury [Unknown]
  - Sensory loss [Unknown]
  - Gastric pH decreased [Unknown]
  - Eye pain [Unknown]
  - Tinnitus [Unknown]
  - Balance disorder [Unknown]
  - Somnolence [Unknown]
  - Cyanosis [Unknown]
  - Drug ineffective [Unknown]
  - Speech disorder [Unknown]
  - Disorientation [Not Recovered/Not Resolved]
  - Toxicity to various agents [Unknown]
  - Drug withdrawal syndrome [Unknown]
  - Dystonia [Unknown]
  - Emotional disorder [Unknown]
  - Feeling of body temperature change [Unknown]
  - Feeling of despair [Unknown]
  - Derealisation [Not Recovered/Not Resolved]
  - Pyrexia [Unknown]
  - Feeling jittery [Unknown]
  - Contusion [Unknown]
  - Musculoskeletal stiffness [Unknown]
  - Mania [Unknown]
  - Menstrual disorder [Unknown]
  - Disturbance in attention [Unknown]
  - Mood swings [Unknown]
  - Muscle disorder [Unknown]
  - Muscle spasms [Not Recovered/Not Resolved]
  - Nightmare [Unknown]
  - Hypoaesthesia oral [Unknown]
  - Depersonalisation/derealisation disorder [Not Recovered/Not Resolved]
  - Pallor [Unknown]
  - Dissociation [Not Recovered/Not Resolved]
  - Paralysis [Unknown]
  - Premature labour [Unknown]
  - Restless legs syndrome [Not Recovered/Not Resolved]
  - Muscle rigidity [Unknown]
  - Serotonin syndrome [Not Recovered/Not Resolved]
  - Illness [Unknown]
  - Delirium [Unknown]
  - Sleep disorder [Unknown]
  - Suicidal ideation [Not Recovered/Not Resolved]
  - Hyperhidrosis [Unknown]
  - Swollen tongue [Unknown]
  - H1N1 influenza [Unknown]
  - Tachycardia [Unknown]
  - Fatigue [Unknown]
  - Tremor [Unknown]
  - Visual impairment [Unknown]
  - Agitation [Unknown]
  - Anxiety [Unknown]
  - Depression [Unknown]
  - Diarrhoea [Unknown]
  - Headache [Unknown]
  - Blood sodium decreased [Unknown]
  - Restlessness [Unknown]
  - Urinary retention [Unknown]
  - Vomiting [Unknown]
  - Asthenia [Unknown]
  - Decreased appetite [Unknown]
  - Contusion [Unknown]
  - Confusional state [Not Recovered/Not Resolved]

NARRATIVE: CASE EVENT DATE: 20030101
